FAERS Safety Report 20712388 (Version 2)
Quarter: 2022Q2

REPORT INFORMATION
  Report Type: Report from Study
  Country: BR (occurrence: BR)
  Receive Date: 20220415
  Receipt Date: 20220428
  Transmission Date: 20220721
  Serious: Yes (Hospitalization, Other)
  Sender: FDA-Public Use
  Company Number: BR-ABBVIE-22K-020-4355090-00

PATIENT
  Age: 59 Year
  Sex: Female
  Weight: 73.5 kg

DRUGS (9)
  1. RINVOQ [Suspect]
     Active Substance: UPADACITINIB
     Indication: Rheumatoid arthritis
     Route: 048
     Dates: start: 20210815, end: 20220424
  2. RINVOQ [Suspect]
     Active Substance: UPADACITINIB
     Route: 048
  3. CHLOROQUINE [Concomitant]
     Active Substance: CHLOROQUINE
     Indication: Product used for unknown indication
  4. ALENDRONATE [Concomitant]
     Active Substance: ALENDRONATE SODIUM
     Indication: Osteoporosis
  5. CHOLECALCIFEROL [Concomitant]
     Active Substance: CHOLECALCIFEROL
     Indication: Osteoporosis
  6. SIMVASTATIN [Concomitant]
     Active Substance: SIMVASTATIN
     Indication: Blood cholesterol
  7. ATENOLOL [Concomitant]
     Active Substance: ATENOLOL
     Indication: Product used for unknown indication
  8. LOSARTAN [Concomitant]
     Active Substance: LOSARTAN
     Indication: Product used for unknown indication
  9. HYDROCHLOROTHIAZIDE [Concomitant]
     Active Substance: HYDROCHLOROTHIAZIDE
     Indication: Product used for unknown indication

REACTIONS (25)
  - Arthropathy [Not Recovered/Not Resolved]
  - Gait disturbance [Not Recovered/Not Resolved]
  - Arthralgia [Unknown]
  - Pain in extremity [Unknown]
  - Diarrhoea [Unknown]
  - Back pain [Unknown]
  - Emotional disorder [Unknown]
  - Hypophagia [Unknown]
  - Wheezing [Unknown]
  - Swelling [Unknown]
  - Pain [Unknown]
  - COVID-19 [Unknown]
  - Dizziness [Unknown]
  - Dengue fever [Unknown]
  - Mumps [Unknown]
  - Blood pressure measurement [Unknown]
  - Sinusitis [Unknown]
  - Unevaluable event [Unknown]
  - Influenza [Recovering/Resolving]
  - Influenza [Recovered/Resolved]
  - Cough [Recovering/Resolving]
  - Arthralgia [Recovering/Resolving]
  - Joint swelling [Not Recovered/Not Resolved]
  - Hypersensitivity [Recovering/Resolving]
  - Influenza [Recovered/Resolved]

NARRATIVE: CASE EVENT DATE: 20210815
